FAERS Safety Report 4270697-8 (Version None)
Quarter: 2004Q1

REPORT INFORMATION
  Report Type: 
  Country: None (occurrence: None)
  Receive Date: 20040113
  Receipt Date: 20040113
  Transmission Date: 20041129
  Serious: Yes (Death)
  Sender: FDA-Public Use
  Company Number: None

PATIENT
  Age: 33 Year
  Sex: Female
  Weight: 84.369 kg

DRUGS (1)
  1. MINIMED MEDTRONICS INSULIN INFUSION PUMP MODEL 507 [Suspect]

REACTIONS (2)
  - DEVICE FAILURE [None]
  - DIABETIC HYPEROSMOLAR COMA [None]
